FAERS Safety Report 16802355 (Version 2)
Quarter: 2019Q3

REPORT INFORMATION
  Report Type: Spontaneous
  Country: AU (occurrence: AU)
  Receive Date: 20190912
  Receipt Date: 20190926
  Transmission Date: 20191005
  Serious: Yes (Hospitalization)
  Sender: FDA-Public Use
  Company Number: AU-CELGENEUS-AUS-20190803728

PATIENT
  Age: 78 Year
  Sex: Male
  Weight: 91.4 kg

DRUGS (24)
  1. AZACITIDINE. [Suspect]
     Active Substance: AZACITIDINE
     Dosage: 50 MILLIGRAM/SQ. METER
     Route: 058
     Dates: start: 20190903
  2. THYROXINE [Concomitant]
     Active Substance: LEVOTHYROXINE
     Indication: HYPOTHYROIDISM
     Dosage: 100 MICROGRAM
     Route: 048
     Dates: start: 1998
  3. FILGRASTIM [Concomitant]
     Active Substance: FILGRASTIM
     Route: 058
     Dates: start: 20190506, end: 20190506
  4. FILGRASTIM [Concomitant]
     Active Substance: FILGRASTIM
     Route: 058
     Dates: start: 20190521, end: 20190521
  5. FILGRASTIM [Concomitant]
     Active Substance: FILGRASTIM
     Route: 058
     Dates: start: 20190702, end: 20190702
  6. FILGRASTIM [Concomitant]
     Active Substance: FILGRASTIM
     Dosage: 480 MICROGRAM
     Route: 058
     Dates: start: 20190803, end: 20190805
  7. RIVAROXABAN [Concomitant]
     Active Substance: RIVAROXABAN
     Indication: ATRIAL FIBRILLATION
     Dosage: 20 MILLIGRAM
     Route: 048
     Dates: start: 20190812
  8. VENETOCLAX. [Concomitant]
     Active Substance: VENETOCLAX
     Dosage: 200 MILLIGRAM
     Route: 048
     Dates: start: 20190803
  9. PARACETAMOL [Concomitant]
     Active Substance: ACETAMINOPHEN
     Indication: MALAISE
     Route: 065
     Dates: start: 20190801
  10. FILGRASTIM [Concomitant]
     Active Substance: FILGRASTIM
     Route: 058
     Dates: start: 20190723, end: 20190723
  11. FILGRASTIM [Concomitant]
     Active Substance: FILGRASTIM
     Dosage: 480 MICROGRAM
     Route: 058
     Dates: start: 20190730, end: 20190730
  12. ONDANSETRON [Concomitant]
     Active Substance: ONDANSETRON
     Indication: PROPHYLAXIS OF NAUSEA AND VOMITING
     Route: 048
     Dates: start: 20181204
  13. ROXITHROMYCIN [Concomitant]
     Active Substance: ROXITHROMYCIN
     Indication: WOUND INFECTION
  14. FILGRASTIM [Concomitant]
     Active Substance: FILGRASTIM
     Indication: NEUTROPENIA
     Route: 058
     Dates: start: 20190305, end: 20190307
  15. FILGRASTIM [Concomitant]
     Active Substance: FILGRASTIM
     Route: 058
     Dates: start: 20190716, end: 20190716
  16. TAMIFLU [Concomitant]
     Active Substance: OSELTAMIVIR PHOSPHATE
     Indication: INFLUENZA
     Dosage: 75 MILLIGRAM
     Route: 048
     Dates: start: 20190820
  17. DILTIAZEM. [Concomitant]
     Active Substance: DILTIAZEM
     Indication: HYPERTENSION
     Dosage: 180 MILLIGRAM
     Route: 048
     Dates: start: 20170403, end: 20190814
  18. FILGRASTIM [Concomitant]
     Active Substance: FILGRASTIM
     Route: 058
     Dates: start: 20190719, end: 20190719
  19. AZACITIDINE. [Suspect]
     Active Substance: AZACITIDINE
     Indication: MYELODYSPLASTIC SYNDROME
     Dosage: 75 MILLIGRAM/SQ. METER
     Route: 058
     Dates: start: 20181204, end: 20190717
  20. ROXITHROMYCIN [Concomitant]
     Active Substance: ROXITHROMYCIN
     Indication: SKIN LACERATION
     Dosage: 300 MILLIGRAM
     Route: 048
     Dates: start: 20190630
  21. FILGRASTIM [Concomitant]
     Active Substance: FILGRASTIM
     Dosage: 480 MICROGRAM
     Route: 058
     Dates: start: 20190726, end: 20190726
  22. TAMIFLU [Concomitant]
     Active Substance: OSELTAMIVIR PHOSPHATE
     Indication: ANTIVIRAL PROPHYLAXIS
  23. VENETOCLAX. [Concomitant]
     Active Substance: VENETOCLAX
     Indication: MYELODYSPLASTIC SYNDROME
     Dosage: 200 MILLIGRAM
     Route: 048
     Dates: start: 20181204, end: 20190722
  24. RAMIPRIL. [Concomitant]
     Active Substance: RAMIPRIL
     Indication: HYPERTENSION
     Dosage: 5 MILLIGRAM
     Route: 048
     Dates: start: 20170403

REACTIONS (2)
  - Physical deconditioning [Recovered/Resolved]
  - Pneumonia legionella [Recovered/Resolved]

NARRATIVE: CASE EVENT DATE: 20190801
